FAERS Safety Report 5693611-7 (Version None)
Quarter: 2008Q2

REPORT INFORMATION
  Report Type: 
  Country: None (occurrence: None)
  Receive Date: 20080328
  Receipt Date: 20071203
  Transmission Date: 20081010
  Serious: Yes (Other)
  Sender: FDA-Public Use
  Company Number: US-WYE-H01609007

PATIENT
  Age: 70 Year
  Sex: Female
  Weight: 88.53 kg

DRUGS (11)
  1. PROTONIX [Suspect]
     Indication: GASTRIC ULCER
     Dosage: 40 MG 1X PER 1 DAY, ORAL
     Route: 048
     Dates: start: 20070501, end: 20071130
  2. GLIPIZIDE [Concomitant]
  3. PRANDIN [Concomitant]
  4. ASPIRIN [Concomitant]
  5. ACCUPRIL [Concomitant]
  6. LIPITOR [Concomitant]
  7. VALIUM [Concomitant]
  8. AVAPRO [Concomitant]
  9. METOPROLOL TARTRATE [Concomitant]
  10. QUINAPRIL HCL [Concomitant]
  11. TRAMADOL HCL [Concomitant]

REACTIONS (1)
  - BLOOD GLUCOSE INCREASED [None]
